FAERS Safety Report 16429316 (Version 2)
Quarter: 2022Q2

REPORT INFORMATION
  Report Type: Spontaneous
  Country: NL (occurrence: NL)
  Receive Date: 20190614
  Receipt Date: 20220408
  Transmission Date: 20220721
  Serious: Yes (Disabling, Other)
  Sender: FDA-Public Use
  Company Number: NL-AUROBINDO-AUR-APL-2019-033405

PATIENT
  Age: 86 Year
  Sex: Female

DRUGS (1)
  1. CIPROFLOXACIN [Suspect]
     Active Substance: CIPROFLOXACIN
     Indication: Urinary tract infection
     Dosage: 500 MILLIGRAM, TWO TIMES A DAY (EVERY 12 HOURS)
     Route: 048
     Dates: start: 20190508, end: 20190511

REACTIONS (1)
  - Deafness [Unknown]

NARRATIVE: CASE EVENT DATE: 20190508
